FAERS Safety Report 23415007 (Version 2)
Quarter: 2024Q1

REPORT INFORMATION
  Report Type: Other
  Country: SE (occurrence: None)
  Receive Date: 20240118
  Receipt Date: 20240206
  Transmission Date: 20240410
  Serious: Yes (Death, Other)
  Sender: FDA-Public Use
  Company Number: SE-ROCHE-3488744

PATIENT

DRUGS (1)
  1. TOCILIZUMAB [Suspect]
     Active Substance: TOCILIZUMAB
     Indication: COVID-19
     Dosage: 8 MG/KG UP TO A MAXIMUM 800 MG.
     Route: 042

REACTIONS (4)
  - Death [Fatal]
  - Respiratory disorder [Unknown]
  - Mediastinal disorder [Unknown]
  - Infection [Unknown]
